FAERS Safety Report 22621860 (Version 1)
Quarter: 2023Q2

REPORT INFORMATION
  Report Type: Report from Study
  Country: IT (occurrence: IT)
  Receive Date: 20230620
  Receipt Date: 20230620
  Transmission Date: 20230721
  Serious: Yes (Death, Other)
  Sender: FDA-Public Use
  Company Number: None

PATIENT
  Age: 58 Year
  Sex: Male

DRUGS (7)
  1. PACLITAXEL [Suspect]
     Active Substance: PACLITAXEL
     Indication: Lung neoplasm malignant
     Dosage: 326 MILLIGRAM
     Route: 042
     Dates: start: 20230331, end: 20230420
  2. CARBOPLATIN [Suspect]
     Active Substance: CARBOPLATIN
     Indication: Lung neoplasm malignant
     Dosage: 666 MILLIGRAM
     Route: 042
     Dates: start: 20230331, end: 20230420
  3. PEMBROLIZUMAB [Suspect]
     Active Substance: PEMBROLIZUMAB
     Indication: Lung neoplasm malignant
     Dosage: 200 MILLIGRAM
     Route: 042
     Dates: start: 20230331, end: 20230420
  4. DEXAMETHASONE [Concomitant]
     Active Substance: DEXAMETHASONE
     Dosage: 8 MILLIGRAM
     Route: 042
     Dates: start: 20230331, end: 20230420
  5. ONDANSETRON [Concomitant]
     Active Substance: ONDANSETRON
     Indication: Nausea
     Dosage: 8 MILLIGRAM
     Route: 042
     Dates: start: 20230331, end: 20230420
  6. FAMOTIDINE [Concomitant]
     Active Substance: FAMOTIDINE
     Indication: Gastrooesophageal reflux disease
     Dosage: 20 MILLIGRAM
     Route: 065
     Dates: start: 20230331, end: 20230420
  7. CHLORPHENIRAMINE MALEATE [Concomitant]
     Active Substance: CHLORPHENIRAMINE MALEATE
     Dosage: 10 MILLIGRAM
     Route: 042
     Dates: start: 20230331, end: 20230420

REACTIONS (7)
  - Decreased appetite [Fatal]
  - Dyspnoea exertional [Fatal]
  - Myocarditis [Fatal]
  - Malaise [Fatal]
  - Immune-mediated hepatitis [Fatal]
  - Ventricular tachycardia [Fatal]
  - Asthenia [Fatal]

NARRATIVE: CASE EVENT DATE: 20230502
